FAERS Safety Report 4434413-9 (Version None)
Quarter: 2004Q3

REPORT INFORMATION
  Report Type: 
  Country: None (occurrence: None)
  Receive Date: 20040726
  Receipt Date: 20040407
  Transmission Date: 20050211
  Serious: No
  Sender: FDA-Public Use
  Company Number: USA040464270

PATIENT
  Age: 65 Year
  Sex: Female
  Weight: 59 kg

DRUGS (2)
  1. FORTEO [Suspect]
     Indication: OSTEOPOROSIS
     Dosage: 20 UG/1 DAY
     Dates: start: 20040401, end: 20040404
  2. ESTRATEST H.S. [Concomitant]

REACTIONS (5)
  - BONE PAIN [None]
  - FLUSHING [None]
  - HEADACHE [None]
  - NAUSEA [None]
  - RASH ERYTHEMATOUS [None]
